FAERS Safety Report 10687835 (Version 2)
Quarter: 2015Q2

REPORT INFORMATION
  Report Type: Report from Study
  Country: JP (occurrence: None)
  Receive Date: 20141230
  Receipt Date: 20150608
  Transmission Date: 20150821
  Serious: Yes (Other)
  Sender: FDA-Public Use
  Company Number: 2008JP005023

PATIENT
  Age: 49 Year
  Sex: Female
  Weight: 68 kg

DRUGS (45)
  1. BAKTAR (SULFAMETHOXAZOLE, TRIMETHOPRIM) TABLET [Suspect]
     Active Substance: SULFAMETHOXAZOLE\TRIMETHOPRIM
     Indication: PRODUCT USED FOR UNKNOWN INDICATION
     Dosage: 2G/MONDAY, THURSDAY
     Route: 048
     Dates: end: 20080104
  2. NEORAL [Concomitant]
     Active Substance: CYCLOSPORINE
  3. DEXALTIN (DEXAMETHASONE) [Concomitant]
  4. MUCOSTA (REBAMIPIDE) [Concomitant]
  5. PREDNISOLONE (PREDNISOLONE) PER ORAL NOS [Suspect]
     Active Substance: PREDNISOLONE
     Indication: LUPUS NEPHRITIS
     Route: 048
     Dates: end: 20071024
  6. ALFAROL [Concomitant]
     Active Substance: ALFACALCIDOL
  7. DERMOVATE (CLOBETASOL PROPIONATE) [Concomitant]
  8. ZESULAN (MEQUITAZINE) [Concomitant]
  9. ONEALFA [Concomitant]
     Active Substance: ALFACALCIDOL
  10. ZESULAN (MEQUITAZINE) [Concomitant]
  11. DEXALTIN (DEXAMETHASONE) [Concomitant]
  12. ONEALFA [Concomitant]
     Active Substance: ALFACALCIDOL
  13. LASIX [Concomitant]
     Active Substance: FUROSEMIDE
  14. PROGRAF [Suspect]
     Active Substance: TACROLIMUS\TACROLIMUS ANHYDROUS
     Indication: LUPUS NEPHRITIS
     Route: 048
     Dates: start: 20071003, end: 20071023
  15. PREDNISOLONE (PREDNISOLONE) PER ORAL NOS [Concomitant]
     Active Substance: PREDNISOLONE
     Indication: LUPUS NEPHRITIS
     Route: 048
     Dates: start: 20111130, end: 20111203
  16. PERSANTIN-L (DIPYRIDAMOLE) [Concomitant]
  17. PARIET (SODIUM RABEPRAZOLE) [Concomitant]
  18. GLAKAY (MENATETRENONE) [Concomitant]
  19. NU-LOTAN (LOSARTAN POTASSIUM) [Concomitant]
  20. IMURAN [Concomitant]
     Active Substance: AZATHIOPRINE
  21. AZUNOL ST (AZULENE SULFONATE SODIUM) [Concomitant]
  22. MARZULENE-S (SODIUM AZULENE SULFONATE _ L-GLUTAMINE) [Concomitant]
  23. MARZULENESS (SODIUM AZULENE SULFONATE  L-GLUTAMINE) [Concomitant]
  24. BREDININ (MIZORIBINE) [Concomitant]
     Active Substance: MIZORIBINE
  25. GASTER [Concomitant]
     Active Substance: FAMOTIDINE
  26. SELBEX (TEPRENONE) [Concomitant]
     Active Substance: TEPRENONE
  27. AMLODIN (AMLODIPINE BESILATE) [Concomitant]
  28. SELBEX (TEPRENONE) [Concomitant]
     Active Substance: TEPRENONE
  29. ADOFEED (FLURBIPROFEN) [Concomitant]
  30. BUFFERIN [Suspect]
     Active Substance: ASPIRIN
     Indication: PRODUCT USED FOR UNKNOWN INDICATION
     Route: 048
     Dates: end: 20080826
  31. FERROMIA (SODIUM FERROUS CITRATE) [Concomitant]
  32. MUCOSTA (REBAMIPIDE) [Concomitant]
  33. ACECOL [Suspect]
     Active Substance: TEMOCAPRIL HYDROCHLORIDE
     Indication: LUPUS NEPHRITIS
     Route: 048
     Dates: start: 20080214, end: 20110126
  34. FOSAMAC (ALENDRONATE SODIUM) [Concomitant]
  35. RINDERON-VG (BETAMETHASONE VALERATE_GENTAMICIN [Concomitant]
  36. NU-LOTAN (LOSARTAN POTASSIUM) [Concomitant]
  37. NEORAL [Concomitant]
     Active Substance: CYCLOSPORINE
  38. MICARDIS [Concomitant]
     Active Substance: TELMISARTAN
  39. BREDININ (MIZORIBINE) [Concomitant]
     Active Substance: MIZORIBINE
  40. ADOFEED (FLURBIPROFEN) [Concomitant]
  41. LASIX [Concomitant]
     Active Substance: FUROSEMIDE
  42. IMURAN (AZITHIOPRINE) [Concomitant]
  43. AZUNOL (SODIUM GUALENATE) [Concomitant]
  44. DERMOVATE (CLOBETASOL PROPIONATE) [Concomitant]
  45. AMLODIN (AMLODIPINE BESILATE) [Concomitant]

REACTIONS (13)
  - Gastritis [None]
  - Condition aggravated [None]
  - Hypertension [None]
  - Anaemia [None]
  - Systemic lupus erythematosus [None]
  - Conjunctival haemorrhage [None]
  - Intentional product misuse [None]
  - Headache [None]
  - Oedema peripheral [None]
  - Hepatic function abnormal [None]
  - White blood cell count decreased [None]
  - Musculoskeletal stiffness [None]
  - Haemorrhage subcutaneous [None]

NARRATIVE: CASE EVENT DATE: 20071024
